FAERS Safety Report 7960462-X (Version None)
Quarter: 2011Q4

REPORT INFORMATION
  Report Type: 
  Country: None (occurrence: None)
  Receive Date: 20111206
  Receipt Date: 20111206
  Transmission Date: 20120403
  Serious: Yes (Death, Hospitalization, Other)
  Sender: FDA-Public Use
  Company Number: HR-ABBOTT-11P-216-0879953-00

PATIENT
  Sex: Male
  Weight: 86 kg

DRUGS (7)
  1. FOLIC ACID [Concomitant]
     Indication: PRODUCT USED FOR UNKNOWN INDICATION
     Route: 048
     Dates: start: 20091001, end: 20111121
  2. ZEMPLAR [Suspect]
     Indication: PRODUCT USED FOR UNKNOWN INDICATION
     Dosage: 5 MCG/1ML AMPOULE; 2 AMPOULE/WEEK
     Route: 042
     Dates: start: 20110112, end: 20111118
  3. CA-KARBONAT [Concomitant]
     Indication: PRODUCT USED FOR UNKNOWN INDICATION
     Dosage: 2G DAILY, 1G TBL/; 2 TBL PER DAY
     Route: 048
  4. LANZUL [Concomitant]
     Indication: PRODUCT USED FOR UNKNOWN INDICATION
     Route: 048
     Dates: start: 20110101, end: 20111101
  5. TAGREN [Concomitant]
     Indication: PRODUCT USED FOR UNKNOWN INDICATION
     Route: 048
  6. ACTRAPID [Concomitant]
     Indication: TYPE 2 DIABETES MELLITUS
     Route: 058
  7. VENOFER [Concomitant]
     Indication: ANAEMIA
     Dosage: 100MG/5ML AMPOULE, 1 AMP PER WEEK
     Route: 042
     Dates: start: 20111005, end: 20111118

REACTIONS (5)
  - FOOT AMPUTATION [None]
  - ACUTE MYOCARDIAL INFARCTION [None]
  - CARDIOGENIC SHOCK [None]
  - ISCHAEMIC CARDIOMYOPATHY [None]
  - CHEST PAIN [None]
